FAERS Safety Report 18557252 (Version 1)
Quarter: 2020Q4

REPORT INFORMATION
  Report Type: Spontaneous
  Country: US (occurrence: US)
  Receive Date: 20201129
  Receipt Date: 20201129
  Transmission Date: 20210114
  Serious: No
  Sender: FDA-Public Use
  Company Number: US-PURDUE PHARMA-USA-2020-0151936

PATIENT
  Sex: Male

DRUGS (1)
  1. HYDROCODONE BITARTRATE (SIMILAR TO NDA 206627) [Suspect]
     Active Substance: HYDROCODONE BITARTRATE
     Indication: PAIN
     Dosage: UNK MG, [REPORTED AS 10/325]
     Route: 048
     Dates: end: 2015

REACTIONS (8)
  - Pain [Unknown]
  - Drug dose titration not performed [Unknown]
  - Peripheral swelling [Unknown]
  - Swelling [Unknown]
  - Head injury [Unknown]
  - Fall [Unknown]
  - Weight increased [Unknown]
  - Balance disorder [Unknown]
